FAERS Safety Report 25972971 (Version 1)
Quarter: 2025Q4

REPORT INFORMATION
  Report Type: Spontaneous
  Country: CN (occurrence: CN)
  Receive Date: 20251029
  Receipt Date: 20251029
  Transmission Date: 20260117
  Serious: Yes (Hospitalization)
  Sender: ABBVIE
  Company Number: CN-ABBOTT-2025A-1403631

PATIENT
  Age: 55 Year
  Sex: Male
  Weight: 99 kg

DRUGS (1)
  1. FENOFIBRATE [Suspect]
     Active Substance: FENOFIBRATE
     Indication: Hypercholesterolaemia
     Route: 048
     Dates: start: 20250808, end: 20251015

REACTIONS (3)
  - Hepatic function abnormal [Recovering/Resolving]
  - Abdominal discomfort [Recovering/Resolving]
  - Jaundice [Recovering/Resolving]

NARRATIVE: CASE EVENT DATE: 20251015
